FAERS Safety Report 16446419 (Version 1)
Quarter: 2019Q2

REPORT INFORMATION
  Report Type: Spontaneous
  Country: US (occurrence: US)
  Receive Date: 20190508
  Receipt Date: 20190508
  Transmission Date: 20190711
  Serious: No
  Sender: FDA-Public Use
  Company Number: None

PATIENT
  Age: 48 Year
  Sex: Female

DRUGS (8)
  1. OXYCODONE [Concomitant]
     Active Substance: OXYCODONE
  2. ZARXIO [Suspect]
     Active Substance: FILGRASTIM-SNDZ
     Indication: NEUTROPENIA
     Route: 058
     Dates: start: 20190501, end: 20190508
  3. LIDOCAINE/PRILOCAINE CREAM [Concomitant]
  4. MULTIVITAMIN [Concomitant]
     Active Substance: VITAMINS
  5. LORAZEPAM. [Concomitant]
     Active Substance: LORAZEPAM
  6. VITAMIN D [Concomitant]
     Active Substance: VITAMIN D NOS
  7. SENNOSIDES TAB [Concomitant]
  8. LEVAQUAN [Concomitant]

REACTIONS (2)
  - Fatigue [None]
  - Bone pain [None]

NARRATIVE: CASE EVENT DATE: 20190502
